FAERS Safety Report 8109503 (Version 7)
Quarter: 2013Q3

REPORT INFORMATION
  Report Type: Report from Study
  Country: JP (occurrence: JP)
  Receive Date: 20110826
  Receipt Date: 20130912
  Transmission Date: 20140515
  Serious: Yes (Hospitalization)
  Sender: FDA-Public Use
  Company Number: JP-EISAI INC-E2080-00404-CLI-JP

PATIENT
  Age: 10 Year
  Sex: Male
  Weight: 21.4 kg

DRUGS (15)
  1. RUFINAMIDE [Suspect]
     Indication: LENNOX-GASTAUT SYNDROME
     Dosage: DOUBLE BLIND TRANSITION PERIOD
     Route: 048
     Dates: start: 20110406, end: 20110502
  2. RUFINAMIDE [Interacting]
     Dosage: OPEN LABEL (200 MG) + BLINDED THERAPY (8 TABLETS)
     Route: 048
     Dates: start: 20110503, end: 20110504
  3. RUFINAMIDE [Interacting]
     Dosage: OPEN LABEL (400 MG) + BLINDED THERAPY (6 TABLETS)
     Route: 048
     Dates: start: 20110505, end: 20110506
  4. RUFINAMIDE [Interacting]
     Dosage: OPEN LABEL (800 MG) + BLINDED THERAPY (2 TABLETS)
     Route: 048
     Dates: start: 20110507, end: 20110508
  5. RUFINAMIDE [Interacting]
     Route: 048
     Dates: start: 20110509
  6. SELENICA-R [Interacting]
     Indication: LENNOX-GASTAUT SYNDROME
     Route: 048
     Dates: start: 20100607, end: 20110816
  7. SELENICA-R [Interacting]
     Route: 048
     Dates: start: 20110817, end: 20110819
  8. SELENICA-R [Interacting]
     Route: 048
     Dates: start: 20110820
  9. PHENOBAL [Interacting]
     Indication: LENNOX-GASTAUT SYNDROME
     Route: 048
     Dates: start: 20101123, end: 20110817
  10. PHENOBAL [Interacting]
     Route: 048
     Dates: start: 20110818, end: 20120607
  11. PHENOBAL [Interacting]
     Route: 048
     Dates: start: 20120608, end: 20120614
  12. PHENOBAL [Interacting]
     Route: 048
     Dates: start: 20120615
  13. EXCEGRAN [Concomitant]
     Indication: LENNOX-GASTAUT SYNDROME
     Route: 048
     Dates: start: 20091001, end: 20120325
  14. EXCEGRAN [Concomitant]
     Route: 048
     Dates: start: 20120326
  15. L-CARTIN [Concomitant]
     Indication: HYPERAMMONAEMIA
     Route: 048
     Dates: start: 20120608

REACTIONS (2)
  - Status epilepticus [Recovered/Resolved]
  - Drug interaction [Recovered/Resolved]
